FAERS Safety Report 24546135 (Version 2)
Quarter: 2025Q2

REPORT INFORMATION
  Report Type: Spontaneous
  Country: DE (occurrence: DE)
  Receive Date: 20241024
  Receipt Date: 20250512
  Transmission Date: 20250716
  Serious: Yes (Hospitalization, Other)
  Sender: MYLAN
  Company Number: DE-AUROBINDO-AUR-APL-2024-049124

PATIENT
  Age: 25 Year
  Sex: Male

DRUGS (4)
  1. FINASTERIDE [Suspect]
     Active Substance: FINASTERIDE
     Indication: Alopecia
     Dosage: 1 MILLIGRAM, QD (1 MILLIGRAM, ONCE A DAY)
  2. FINASTERIDE [Suspect]
     Active Substance: FINASTERIDE
     Dosage: 1 MILLIGRAM, QD (1 MILLIGRAM, ONCE A DAY)
     Route: 048
  3. FINASTERIDE [Suspect]
     Active Substance: FINASTERIDE
     Dosage: 1 MILLIGRAM, QD (1 MILLIGRAM, ONCE A DAY)
     Route: 048
  4. FINASTERIDE [Suspect]
     Active Substance: FINASTERIDE
     Dosage: 1 MILLIGRAM, QD (1 MILLIGRAM, ONCE A DAY)

REACTIONS (7)
  - Mental impairment [Recovered/Resolved]
  - Depression [Recovered/Resolved]
  - Condition aggravated [Recovered/Resolved]
  - Libido disorder [Recovered/Resolved]
  - Adverse event [Unknown]
  - Withdrawal syndrome [Unknown]
  - Post 5-alpha-reductase inhibitor syndrome [Unknown]
